FAERS Safety Report 18794458 (Version 1)
Quarter: 2021Q1

REPORT INFORMATION
  Report Type: Spontaneous
  Country: GB (occurrence: GB)
  Receive Date: 20210127
  Receipt Date: 20210127
  Transmission Date: 20210419
  Serious: Yes (Disabling)
  Sender: FDA-Public Use
  Company Number: GB-MYLANLABS-2021M1004159

PATIENT
  Age: 47 Year
  Sex: Female
  Weight: 63.7 kg

DRUGS (5)
  1. TOPIRAMATE. [Suspect]
     Active Substance: TOPIRAMATE
     Indication: CLUSTER HEADACHE
     Dosage: 25 MILLIGRAM, QD
     Route: 048
     Dates: start: 20201014, end: 20201217
  2. COLECALCIFEROL [Concomitant]
     Active Substance: CHOLECALCIFEROL
     Dosage: 20000 INTERNATIONAL UNIT, BIMONTHLY
  3. BISOPROLOL FUMARATE. [Concomitant]
     Active Substance: BISOPROLOL FUMARATE
     Dosage: 3.75 MILLIGRAM, QD
  4. SUMATRIPTAN SUCCINATE. [Concomitant]
     Active Substance: SUMATRIPTAN SUCCINATE
     Dosage: 100 MILLIGRAM, PRN
  5. GABAPENTIN. [Concomitant]
     Active Substance: GABAPENTIN
     Dosage: 300 MILLIGRAM, TID

REACTIONS (2)
  - Muscular weakness [Not Recovered/Not Resolved]
  - Speech disorder [Unknown]

NARRATIVE: CASE EVENT DATE: 20201215
